FAERS Safety Report 9783473 (Version 3)
Quarter: 2014Q1

REPORT INFORMATION
  Report Type: Spontaneous
  Country: US (occurrence: US)
  Receive Date: 20131226
  Receipt Date: 20140224
  Transmission Date: 20141002
  Serious: Yes (Hospitalization)
  Sender: FDA-Public Use
  Company Number: US-BAXTER-2013BAX051745

PATIENT
  Sex: Male

DRUGS (4)
  1. DIANEAL LOW CALCIUM [Suspect]
     Indication: PERITONEAL DIALYSIS
     Route: 033
     Dates: start: 201301, end: 20140114
  2. DIANEAL LOW CALCIUM [Suspect]
     Indication: PERITONEAL DIALYSIS
     Route: 033
     Dates: start: 201301, end: 20140114
  3. EXTRANEAL [Suspect]
     Indication: PERITONEAL DIALYSIS
     Route: 033
     Dates: start: 201301, end: 20140114
  4. ENEMA [Suspect]
     Indication: CONSTIPATION
     Dates: start: 201312

REACTIONS (4)
  - Constipation [Recovering/Resolving]
  - Peritonitis bacterial [Recovered/Resolved]
  - Hypotension [Recovered/Resolved]
  - Peritoneal dialysis complication [Unknown]
